FAERS Safety Report 5818455-4 (Version None)
Quarter: 2008Q3

REPORT INFORMATION
  Report Type: 
  Country: None (occurrence: None)
  Receive Date: 20080716
  Receipt Date: 20080707
  Transmission Date: 20090109
  Serious: Yes (Other)
  Sender: FDA-Public Use
  Company Number: 19714

PATIENT
  Sex: Male

DRUGS (3)
  1. BLEOMYCIN SULFATE [Suspect]
     Indication: TESTIS CANCER
  2. CISPLATIN [Suspect]
     Indication: TESTIS CANCER
  3. ETOPOSIDE [Suspect]
     Indication: TESTIS CANCER

REACTIONS (1)
  - CYTOGENETIC ABNORMALITY [None]
